FAERS Safety Report 4358741-0 (Version None)
Quarter: 2004Q2

REPORT INFORMATION
  Report Type: 
  Country: None (occurrence: None)
  Receive Date: 20040511
  Receipt Date: 20040428
  Transmission Date: 20050107
  Serious: Yes (Hospitalization, Other)
  Sender: FDA-Public Use
  Company Number: 2004211722FR

PATIENT
  Age: 82 Year
  Sex: Male

DRUGS (3)
  1. CELEBREX [Suspect]
     Indication: OSTEOARTHRITIS
     Dosage: 200 MG, BID ORAL : 200 MG , QD, ORAL
     Route: 048
  2. CELEBREX [Suspect]
     Indication: OSTEOARTHRITIS
     Dosage: 200 MG, BID ORAL : 200 MG , QD, ORAL
     Route: 048
  3. ANTIDIABETICS [Concomitant]

REACTIONS (3)
  - ANAEMIA [None]
  - HIATUS HERNIA [None]
  - MALAISE [None]
